FAERS Safety Report 25238270 (Version 2)
Quarter: 2025Q3

REPORT INFORMATION
  Report Type: Report from Study
  Country: US (occurrence: US)
  Receive Date: 20250425
  Receipt Date: 20250716
  Transmission Date: 20251021
  Serious: Yes (Hospitalization)
  Sender: SUNOVION
  Company Number: US-SMPA-2025SPA004677

PATIENT

DRUGS (3)
  1. ORGOVYX [Suspect]
     Active Substance: RELUGOLIX
     Indication: Prostate cancer
     Route: 048
     Dates: start: 20220908, end: 20220908
  2. ORGOVYX [Suspect]
     Active Substance: RELUGOLIX
     Dosage: 120 MG, QD, TAKEN WITH MDO SAMPLES
     Route: 048
     Dates: start: 20220909
  3. CARVEDILOL [Concomitant]
     Active Substance: CARVEDILOL
     Dosage: UNKNOWN
     Route: 065

REACTIONS (4)
  - Hypotension [Unknown]
  - Gait disturbance [Unknown]
  - Pain in extremity [Unknown]
  - Product dose omission issue [Unknown]
